FAERS Safety Report 5116253-0 (Version None)
Quarter: 2006Q3

REPORT INFORMATION
  Report Type: 
  Country: None (occurrence: None)
  Receive Date: 20060927
  Receipt Date: 20060918
  Transmission Date: 20061208
  Serious: Yes (Disabling)
  Sender: FDA-Public Use
  Company Number: GB-GLAXOSMITHKLINE-B0439231A

PATIENT
  Age: 83 Year
  Sex: Female
  Weight: 54 kg

DRUGS (6)
  1. SERETIDE [Suspect]
     Indication: ASTHMA
     Route: 055
     Dates: start: 20060404, end: 20060407
  2. ADCAL [Concomitant]
     Indication: OSTEOPOROSIS
     Route: 048
  3. AMLODIPINE [Concomitant]
     Indication: HYPERTENSION
     Route: 048
     Dates: start: 20000101
  4. ASPIRIN [Concomitant]
     Indication: TRANSIENT ISCHAEMIC ATTACK
     Route: 048
     Dates: start: 20000101
  5. UNKNOWN MEDICATION [Concomitant]
     Indication: BONE DISORDER
     Route: 048
     Dates: start: 20060408
  6. VENTOLIN [Concomitant]
     Indication: ASTHMA
     Route: 055

REACTIONS (1)
  - BACK PAIN [None]
